FAERS Safety Report 18270701 (Version 1)
Quarter: 2020Q3

REPORT INFORMATION
  Report Type: Spontaneous
  Country: US (occurrence: US)
  Receive Date: 20200916
  Receipt Date: 20200916
  Transmission Date: 20201103
  Serious: No
  Sender: FDA-Public Use
  Company Number: US-AMGEN INC.-USASP2020148765

PATIENT
  Age: 48 Year
  Sex: Male

DRUGS (2)
  1. AIMOVIG [Suspect]
     Active Substance: ERENUMAB-AOOE
     Indication: MIGRAINE PROPHYLAXIS
     Dosage: UNK UNK, QMO
     Route: 065
     Dates: start: 2019
  2. TOPIRAMATE. [Suspect]
     Active Substance: TOPIRAMATE
     Indication: MIGRAINE
     Dosage: UNK UNK, QD, TAPER OFF
     Route: 065

REACTIONS (2)
  - Paraesthesia [Recovering/Resolving]
  - Coordination abnormal [Recovering/Resolving]

NARRATIVE: CASE EVENT DATE: 2020
